FAERS Safety Report 6706763-4 (Version None)
Quarter: 2010Q2

REPORT INFORMATION
  Report Type: 
  Country: None (occurrence: None)
  Receive Date: 20100503
  Receipt Date: 20100429
  Transmission Date: 20101027
  Serious: Yes (Hospitalization)
  Sender: FDA-Public Use
  Company Number: A0807829A

PATIENT
  Age: 57 Year
  Sex: Female

DRUGS (1)
  1. ALLI [Suspect]
     Indication: WEIGHT CONTROL
     Route: 048

REACTIONS (6)
  - BLOOD TEST ABNORMAL [None]
  - DRUG ABUSE [None]
  - HAEMORRHOIDS [None]
  - MELANOSIS [None]
  - RECTAL HAEMORRHAGE [None]
  - STRESS [None]
